FAERS Safety Report 19893818 (Version 1)
Quarter: 2021Q3

REPORT INFORMATION
  Report Type: Spontaneous
  Country: US (occurrence: US)
  Receive Date: 20210929
  Receipt Date: 20210929
  Transmission Date: 20211014
  Serious: No
  Sender: FDA-Public Use
  Company Number: US-DRREDDYS-SPO/USA/21/0141889

PATIENT
  Age: 46 Year
  Sex: Male

DRUGS (4)
  1. MORPHINE [Suspect]
     Active Substance: MORPHINE
     Indication: TACHYPNOEA
  2. MORPHINE [Suspect]
     Active Substance: MORPHINE
     Indication: RESPIRATORY ALKALOSIS
  3. LORAZEPAM INJECTION USP, 2 MG/ML AND 4 MG/ML [Suspect]
     Active Substance: LORAZEPAM
     Indication: RESPIRATORY ALKALOSIS
  4. LORAZEPAM INJECTION USP, 2 MG/ML AND 4 MG/ML [Suspect]
     Active Substance: LORAZEPAM
     Indication: TACHYPNOEA

REACTIONS (2)
  - Drug ineffective [Unknown]
  - Sedation complication [Unknown]
